FAERS Safety Report 8443219-5 (Version None)
Quarter: 2012Q2

REPORT INFORMATION
  Report Type: 
  Country: None (occurrence: None)
  Receive Date: 20120617
  Receipt Date: 20120604
  Transmission Date: 20120825
  Serious: Yes (Other)
  Sender: FDA-Public Use
  Company Number: NL-TEVA-310543ISR

PATIENT
  Sex: Female

DRUGS (3)
  1. ACETAMINOPHEN [Concomitant]
  2. OXALIPLATIN [Suspect]
     Dosage: 195 MILLIGRAM;
     Route: 042
     Dates: start: 20111026, end: 20111116
  3. OXALIPLATIN [Suspect]
     Indication: COLON CANCER
     Dosage: 260 MILLIGRAM;
     Route: 042
     Dates: start: 20110713, end: 20111005

REACTIONS (8)
  - SLEEP DISORDER [None]
  - MUCOUS MEMBRANE DISORDER [None]
  - PARAESTHESIA [None]
  - DIARRHOEA [None]
  - FEELING COLD [None]
  - LOSS OF CONSCIOUSNESS [None]
  - NAUSEA [None]
  - HYPERHIDROSIS [None]
